FAERS Safety Report 8313750-1 (Version None)
Quarter: 2012Q2

REPORT INFORMATION
  Report Type: 
  Country: None (occurrence: None)
  Receive Date: 20120426
  Receipt Date: 20120420
  Transmission Date: 20120825
  Serious: Yes (Hospitalization, Other)
  Sender: FDA-Public Use
  Company Number: PHHY2012BR026170

PATIENT
  Age: 62 Year
  Sex: Female

DRUGS (4)
  1. GALVUS [Suspect]
     Dosage: UNK
  2. INDAPAMIDE [Concomitant]
     Indication: HYPERTENSION
     Dosage: UNK
  3. PROPAFENONE HCL [Concomitant]
     Indication: CARDIAC DISORDER
     Dosage: UNK
  4. EXFORGE [Suspect]
     Indication: HYPERTENSION
     Dosage: 1 TABLET (320/5 MG) A DAY

REACTIONS (5)
  - DIABETES MELLITUS [None]
  - MALAISE [None]
  - CHEST PAIN [None]
  - INFARCTION [None]
  - DIZZINESS [None]
